FAERS Safety Report 12141246 (Version 1)
Quarter: 2016Q1

REPORT INFORMATION
  Report Type: Spontaneous
  Country: JP (occurrence: JP)
  Receive Date: 20160303
  Receipt Date: 20160303
  Transmission Date: 20160526
  Serious: Yes (Other)
  Sender: FDA-Public Use
  Company Number: JP-PFIZER INC-2016127369

PATIENT
  Age: 80 Year
  Sex: Male

DRUGS (2)
  1. LYRICA [Suspect]
     Active Substance: PREGABALIN
     Dosage: UNK (STRENGTH 75MG)
     Route: 048
     Dates: start: 201209, end: 201210
  2. LYRICA [Suspect]
     Active Substance: PREGABALIN
     Dosage: UNK (STRENGTH 25MG)
     Route: 048
     Dates: start: 201208, end: 201209

REACTIONS (1)
  - Erythema multiforme [Unknown]
